FAERS Safety Report 23416622 (Version 3)
Quarter: 2024Q2

REPORT INFORMATION
  Report Type: Spontaneous
  Country: US (occurrence: US)
  Receive Date: 20240118
  Receipt Date: 20240517
  Transmission Date: 20240716
  Serious: No
  Sender: FDA-Public Use
  Company Number: US-SA-SAC20240110000577

PATIENT
  Age: 68 Year
  Sex: Female

DRUGS (1)
  1. DUPIXENT [Suspect]
     Active Substance: DUPILUMAB
     Indication: Asthma
     Dosage: 300 MG, QOW
     Route: 058
     Dates: start: 202209

REACTIONS (13)
  - Dry throat [Unknown]
  - Dysphonia [Unknown]
  - Eosinophilic oesophagitis [Unknown]
  - Blood cholesterol increased [Unknown]
  - Vitamin D deficiency [Recovering/Resolving]
  - Cough [Recovering/Resolving]
  - Headache [Recovering/Resolving]
  - Laryngitis [Recovering/Resolving]
  - Respiratory tract congestion [Recovering/Resolving]
  - Irritable bowel syndrome [Recovering/Resolving]
  - Pulmonary function test decreased [Recovering/Resolving]
  - Eosinophil count increased [Unknown]
  - Asthma [Recovering/Resolving]

NARRATIVE: CASE EVENT DATE: 20240304
